FAERS Safety Report 24203532 (Version 1)
Quarter: 2024Q3

REPORT INFORMATION
  Report Type: Report from Study
  Country: US (occurrence: US)
  Receive Date: 20240813
  Receipt Date: 20240813
  Transmission Date: 20241016
  Serious: Yes (Other)
  Sender: ABBVIE
  Company Number: US-ABBVIE-5874347

PATIENT
  Sex: Male

DRUGS (1)
  1. RINVOQ [Suspect]
     Active Substance: UPADACITINIB
     Indication: Crohn^s disease
     Route: 048
     Dates: start: 20240314, end: 20240801

REACTIONS (6)
  - Eyelid cyst [Recovered/Resolved]
  - Eyelid cyst [Recovered/Resolved]
  - Rash [Unknown]
  - Acne [Unknown]
  - White blood cell count increased [Unknown]
  - Plague [Unknown]

NARRATIVE: CASE EVENT DATE: 20240101
